FAERS Safety Report 16909446 (Version 2)
Quarter: 2020Q2

REPORT INFORMATION
  Report Type: Report from Study
  Country: US (occurrence: US)
  Receive Date: 20191011
  Receipt Date: 20200525
  Transmission Date: 20200713
  Serious: Yes (Hospitalization)
  Sender: FDA-Public Use
  Company Number: US-PFIZER INC-2019432954

PATIENT
  Age: 16 Year
  Sex: Female
  Weight: 65.1 kg

DRUGS (8)
  1. CYTARABINE. [Suspect]
     Active Substance: CYTARABINE
     Indication: B PRECURSOR TYPE ACUTE LEUKAEMIA
     Dosage: 135 MG, QD X 4 DAYS
     Route: 042
     Dates: start: 20170313
  2. DEXAMETHASONE. [Suspect]
     Active Substance: DEXAMETHASONE
     Indication: B PRECURSOR TYPE ACUTE LEUKAEMIA
     Dosage: 9 MG, 2X/DAY, TABLET
     Route: 048
     Dates: start: 20170731
  3. THIOGUANINE [Suspect]
     Active Substance: THIOGUANINE
     Indication: B PRECURSOR TYPE ACUTE LEUKAEMIA
     Dosage: 100 MG NIGHTLY MON-FRI; 120 MG NIGHTLY SAT-SUN FOR 14 DAYS
     Route: 048
     Dates: start: 20170918
  4. METHOTREXATE SODIUM. [Suspect]
     Active Substance: METHOTREXATE SODIUM
     Indication: B PRECURSOR TYPE ACUTE LEUKAEMIA
     Dosage: 15 MG, UNK
     Route: 037
     Dates: start: 20170918
  5. DOXORUBICIN HCL [Suspect]
     Active Substance: DOXORUBICIN HYDROCHLORIDE
     Indication: B PRECURSOR TYPE ACUTE LEUKAEMIA
     Dosage: 45 MG, DAYS 1, 8, 15
     Route: 042
     Dates: start: 20170731
  6. INCB018424 [Suspect]
     Active Substance: RUXOLITINIB
     Dosage: TABLET
     Route: 048
     Dates: start: 20170925
  7. INCB018424 [Suspect]
     Active Substance: RUXOLITINIB
     Indication: ACUTE LYMPHOCYTIC LEUKAEMIA
     Dosage: 70 MG, 2X/DAY, TABLET
     Route: 048
     Dates: start: 20170313
  8. CYCLOPHOSPHAMIDE. [Suspect]
     Active Substance: CYCLOPHOSPHAMIDE
     Indication: B PRECURSOR TYPE ACUTE LEUKAEMIA
     Dosage: 1780 MG, ONCE
     Route: 042
     Dates: start: 20170313

REACTIONS (2)
  - Pulmonary mycosis [Recovering/Resolving]
  - Pulmonary haemorrhage [Recovered/Resolved]

NARRATIVE: CASE EVENT DATE: 20170912
